FAERS Safety Report 5558123-X (Version None)
Quarter: 2007Q4

REPORT INFORMATION
  Report Type: 
  Country: None (occurrence: None)
  Receive Date: 20071211
  Receipt Date: 20071129
  Transmission Date: 20080405
  Serious: Yes (Other)
  Sender: FDA-Public Use
  Company Number: GXKR2007MK10278

PATIENT
  Age: 6 Year
  Sex: Male

DRUGS (2)
  1. OSPAMOX G-AMX+TAB(AMOXICILLIN TRIHYDRATE) TABLET [Suspect]
     Indication: ACUTE TONSILLITIS
     Dosage: 500 MG, BID, ORAL
     Route: 048
     Dates: start: 20071126, end: 20071127
  2. ACETAMINOPHEN [Concomitant]

REACTIONS (1)
  - DIARRHOEA HAEMORRHAGIC [None]
